FAERS Safety Report 5700715-9 (Version None)
Quarter: 2008Q2

REPORT INFORMATION
  Report Type: 
  Country: None (occurrence: None)
  Receive Date: 20080410
  Receipt Date: 20080114
  Transmission Date: 20081010
  Serious: No
  Sender: FDA-Public Use
  Company Number: A0703014A

PATIENT
  Age: 70 Year
  Sex: Female

DRUGS (4)
  1. TYKERB [Suspect]
     Indication: BREAST CANCER
     Dosage: 5TAB PER DAY
     Route: 048
     Dates: start: 20080109
  2. XELODA [Concomitant]
  3. DARVOCET [Concomitant]
  4. LORAZEPAM [Concomitant]

REACTIONS (1)
  - DIARRHOEA [None]
